FAERS Safety Report 15213686 (Version 1)
Quarter: 2018Q3

REPORT INFORMATION
  Report Type: Spontaneous
  Country: US (occurrence: US)
  Receive Date: 20180730
  Receipt Date: 20180730
  Transmission Date: 20181010
  Serious: Yes (Hospitalization)
  Sender: FDA-Public Use
  Company Number: US-ROCHE-2160086

PATIENT
  Age: 38 Year
  Sex: Male

DRUGS (10)
  1. OCALIVA [Suspect]
     Active Substance: OBETICHOLIC ACID
     Indication: PRIMARY BILIARY CHOLANGITIS
     Route: 048
     Dates: start: 20161214, end: 20170401
  2. URSODIOL. [Concomitant]
     Active Substance: URSODIOL
     Route: 065
     Dates: start: 201203
  3. OCALIVA [Suspect]
     Active Substance: OBETICHOLIC ACID
     Indication: AUTOIMMUNE HEPATITIS
     Route: 048
     Dates: start: 20170611, end: 20180109
  4. PREDNISONE. [Suspect]
     Active Substance: PREDNISONE
     Indication: PRODUCT USED FOR UNKNOWN INDICATION
     Dosage: ONGOING
     Route: 065
     Dates: start: 201203
  5. RITUXAN [Suspect]
     Active Substance: RITUXIMAB
     Indication: RHEUMATOID ARTHRITIS
     Route: 065
     Dates: start: 201205, end: 201711
  6. OCALIVA [Suspect]
     Active Substance: OBETICHOLIC ACID
     Indication: VANISHING BILE DUCT SYNDROME
     Route: 048
     Dates: start: 20170401, end: 20170515
  7. IMURAN [Suspect]
     Active Substance: AZATHIOPRINE
     Indication: PRODUCT USED FOR UNKNOWN INDICATION
     Route: 065
     Dates: start: 201609
  8. PROTONIX [Concomitant]
     Active Substance: PANTOPRAZOLE SODIUM
  9. AMLODIPINE [Concomitant]
     Active Substance: AMLODIPINE BESYLATE
  10. DUONEB [Concomitant]
     Active Substance: ALBUTEROL SULFATE\IPRATROPIUM BROMIDE

REACTIONS (14)
  - Anaemia [Recovered/Resolved]
  - Drug ineffective [Unknown]
  - Blood albumin decreased [Recovered/Resolved]
  - Hepatosplenomegaly [Unknown]
  - Pruritus [Unknown]
  - Rash [Unknown]
  - Cytopenia [Recovered/Resolved]
  - Parvovirus B19 infection [Recovered/Resolved]
  - Platelet count decreased [Unknown]
  - Myalgia [Recovered/Resolved]
  - Blood bilirubin increased [Recovered/Resolved]
  - Headache [Recovered/Resolved]
  - Pyrexia [Unknown]
  - Confusional state [Recovered/Resolved]

NARRATIVE: CASE EVENT DATE: 20180109
